FAERS Safety Report 9360961 (Version 1)
Quarter: 2013Q2

REPORT INFORMATION
  Report Type: Spontaneous
  Country: US (occurrence: US)
  Receive Date: 20130621
  Receipt Date: 20130621
  Transmission Date: 20140414
  Serious: Yes (Hospitalization)
  Sender: FDA-Public Use
  Company Number: US-PFIZER INC-2013185725

PATIENT
  Age: 74 Year
  Sex: Female
  Weight: 60.77 kg

DRUGS (2)
  1. CHANTIX [Suspect]
     Indication: SMOKING CESSATION THERAPY
     Dosage: 0.5 MG, 1X/DAY
     Route: 048
     Dates: start: 2012, end: 2012
  2. VICODIN [Concomitant]
     Indication: PAIN
     Dosage: UNK

REACTIONS (1)
  - Diarrhoea [Unknown]
